FAERS Safety Report 8113090-X (Version None)
Quarter: 2012Q1

REPORT INFORMATION
  Report Type: 
  Country: None (occurrence: None)
  Receive Date: 20120203
  Receipt Date: 20120118
  Transmission Date: 20120608
  Serious: Yes (Other)
  Sender: FDA-Public Use
  Company Number: DE-GLAXOSMITHKLINE-D0074163A

PATIENT
  Sex: Female

DRUGS (3)
  1. KEPPRA [Concomitant]
     Indication: EPILEPSY
     Dosage: 500MG UNKNOWN
     Route: 048
  2. TOPIRAMATE [Concomitant]
     Indication: EPILEPSY
     Dosage: 100MG UNKNOWN
     Route: 048
  3. TROBALT [Suspect]
     Indication: EPILEPSY
     Route: 048
     Dates: end: 20120101

REACTIONS (6)
  - INFECTION SUSCEPTIBILITY INCREASED [None]
  - FATIGUE [None]
  - BRONCHITIS [None]
  - GASTROENTERITIS [None]
  - PNEUMONIA [None]
  - PLEURISY [None]
